FAERS Safety Report 9597309 (Version 4)
Quarter: 2014Q3

REPORT INFORMATION
  Report Type: Report from Study
  Country: DE (occurrence: DE)
  Receive Date: 20131004
  Receipt Date: 20140722
  Transmission Date: 20150326
  Serious: Yes (Other)
  Sender: FDA-Public Use
  Company Number: DE-ROCHE-1282264

PATIENT
  Age: 55 Year
  Sex: Female
  Weight: 85 kg

DRUGS (9)
  1. RANIBIZUMAB [Suspect]
     Active Substance: RANIBIZUMAB
     Indication: AGE-RELATED MACULAR DEGENERATION
     Route: 050
     Dates: start: 201111
  2. MACROGOL [Concomitant]
     Active Substance: POLYETHYLENE GLYCOLS
  3. ARTELAC REBALANCE [Concomitant]
     Route: 047
     Dates: start: 20130813
  4. HYALURONIC ACID SODIUM [Concomitant]
  5. POTASSIUM CHLORIDE. [Concomitant]
     Active Substance: POTASSIUM CHLORIDE
  6. RANIBIZUMAB [Suspect]
     Active Substance: RANIBIZUMAB
     Route: 050
     Dates: start: 20130812, end: 20130812
  7. RANIBIZUMAB [Suspect]
     Active Substance: RANIBIZUMAB
     Route: 050
     Dates: start: 20130716, end: 20130716
  8. SODIUM HYALURONATE [Concomitant]
     Active Substance: HYALURONATE SODIUM
  9. MAGNESIUM CHLORIDE. [Concomitant]
     Active Substance: MAGNESIUM CHLORIDE

REACTIONS (7)
  - Visual acuity reduced [Not Recovered/Not Resolved]
  - Retinal pigment epithelial tear [Not Recovered/Not Resolved]
  - Metamorphopsia [Unknown]
  - Detachment of retinal pigment epithelium [Not Recovered/Not Resolved]
  - Sjogren^s syndrome [Recovering/Resolving]
  - Age-related macular degeneration [Unknown]
  - Retinal scar [Not Recovered/Not Resolved]

NARRATIVE: CASE EVENT DATE: 201111
